FAERS Safety Report 15693578 (Version 9)
Quarter: 2022Q3

REPORT INFORMATION
  Report Type: Report from Study
  Country: US (occurrence: None)
  Receive Date: 20181206
  Receipt Date: 20220715
  Transmission Date: 20221027
  Serious: Yes (Other)
  Sender: FDA-Public Use
  Company Number: US-ROCHE-2222532

PATIENT
  Age: 54 Year
  Sex: Female
  Weight: 75.3 kg

DRUGS (39)
  1. ATEZOLIZUMAB [Suspect]
     Active Substance: ATEZOLIZUMAB
     Indication: Ovarian cancer
     Dosage: ON 01/NOV/2018, HE RECEIVED MOST RECENT DOSE OF BLINDED ATEZOLIZUMABPRIOR TO AE ONSET
     Route: 041
     Dates: start: 20180726
  2. BEVACIZUMAB [Suspect]
     Active Substance: BEVACIZUMAB
     Indication: Ovarian cancer
     Dosage: ON 01/NOV/2018, HE RECEIVED MOST RECENT DOSE OF BEVACIZUMAB 1158 MG PRIOR TO AE ONSET
     Route: 042
     Dates: start: 20180816
  3. PACLITAXEL [Suspect]
     Active Substance: PACLITAXEL
     Indication: Ovarian cancer
     Dosage: ON 01/NOV/2018, HE RECEIVED MOST RECENT DOSE OF PACLITAXEL 323.8 MG PRIOR TO AE ONSET
     Route: 042
     Dates: start: 20180726
  4. CARBOPLATIN [Suspect]
     Active Substance: CARBOPLATIN
     Indication: Ovarian cancer
     Dosage: ON 01/NOV/2018, HE RECEIVED MOST RECENT DOSE OF CARBOPLATIN 717 MG PRIOR TO AE ONSET?AT A DOSE TO AC
     Route: 042
     Dates: start: 20180726
  5. ACIPHEX [Concomitant]
     Active Substance: RABEPRAZOLE SODIUM
     Indication: Gastrooesophageal reflux disease
     Dates: start: 2008
  6. CETIRIZINE [Concomitant]
     Active Substance: CETIRIZINE HYDROCHLORIDE
     Indication: Seasonal allergy
     Dates: start: 2003, end: 20181119
  7. ASPIRIN [Concomitant]
     Active Substance: ASPIRIN
     Dates: start: 2016
  8. BUPROPION HYDROCHLORIDE [Concomitant]
     Active Substance: BUPROPION HYDROCHLORIDE
     Indication: Depression
     Dates: start: 2013
  9. CALCIUM POLYCARBOPHIL [Concomitant]
     Active Substance: CALCIUM POLYCARBOPHIL
     Indication: Constipation
     Dates: start: 2013, end: 20190507
  10. FISH OIL [Concomitant]
     Active Substance: FISH OIL
     Dates: start: 2016
  11. PERCOCET [Concomitant]
     Active Substance: ACETAMINOPHEN\OXYCODONE HYDROCHLORIDE
     Indication: Pain
     Dates: start: 20180709
  12. TRAZODONE [Concomitant]
     Active Substance: TRAZODONE HYDROCHLORIDE
     Indication: Depression
     Dates: start: 2016, end: 20200917
  13. HYDROCHLOROTHIAZIDE\VALSARTAN [Concomitant]
     Active Substance: HYDROCHLOROTHIAZIDE\VALSARTAN
     Indication: Hypertension
     Dates: start: 2016
  14. ZOFRAN [Concomitant]
     Active Substance: ONDANSETRON HYDROCHLORIDE
     Indication: Nausea
     Dates: start: 20180725, end: 20200318
  15. ZOFRAN [Concomitant]
     Active Substance: ONDANSETRON HYDROCHLORIDE
     Indication: Diarrhoea
     Dates: start: 20181114, end: 20181114
  16. COMPAZINE [Concomitant]
     Active Substance: PROCHLORPERAZINE MALEATE
     Indication: Nausea
     Dates: start: 20180725, end: 20200318
  17. IMODIUM AD [Concomitant]
     Active Substance: LOPERAMIDE HYDROCHLORIDE
     Indication: Diarrhoea
     Dates: start: 20180730
  18. CIPRO [Concomitant]
     Active Substance: CIPROFLOXACIN HYDROCHLORIDE
     Indication: Proctalgia
     Dates: start: 20180926
  19. CIPRO [Concomitant]
     Active Substance: CIPROFLOXACIN HYDROCHLORIDE
     Indication: Diarrhoea
     Dates: start: 20181024, end: 20181107
  20. FLAGYL [Concomitant]
     Active Substance: METRONIDAZOLE\METRONIDAZOLE HYDROCHLORIDE
     Indication: Proctalgia
     Dates: start: 20180926
  21. FLAGYL [Concomitant]
     Active Substance: METRONIDAZOLE\METRONIDAZOLE HYDROCHLORIDE
     Indication: Diarrhoea
     Dates: start: 20181004, end: 20181107
  22. REQUIP [Concomitant]
     Active Substance: ROPINIROLE HYDROCHLORIDE
     Indication: Restless legs syndrome
     Dates: start: 20180926
  23. CLARITIN [Concomitant]
     Active Substance: LORATADINE
     Indication: Seasonal allergy
     Dates: start: 20181120
  24. COREG [Concomitant]
     Active Substance: CARVEDILOL
     Dates: start: 20190215, end: 20201223
  25. DIFLUCAN [Concomitant]
     Active Substance: FLUCONAZOLE
     Indication: Vulvovaginal mycotic infection
     Dates: start: 20181114, end: 20181114
  26. POTASSIUM CHLORIDE [Concomitant]
     Active Substance: POTASSIUM CHLORIDE
     Indication: Hypokalaemia
     Dates: start: 20181120
  27. NIFEDIPINE [Concomitant]
     Active Substance: NIFEDIPINE
     Indication: Anal fissure
     Dates: start: 20190508
  28. FLEXERIL [Concomitant]
     Active Substance: CYCLOBENZAPRINE HYDROCHLORIDE
     Indication: Arthralgia
     Dates: start: 20190508
  29. ZANTAC [Concomitant]
     Active Substance: RANITIDINE HYDROCHLORIDE
     Indication: Gastrooesophageal reflux disease
     Dates: start: 20190717, end: 20191030
  30. PROTONIX [Concomitant]
     Active Substance: PANTOPRAZOLE SODIUM
     Indication: Gastrooesophageal reflux disease
     Dates: start: 20191030
  31. SODIUM CHLORIDE [Concomitant]
     Active Substance: SODIUM CHLORIDE
     Indication: Diarrhoea
     Dates: start: 20181114, end: 20181114
  32. LOMOTIL [Concomitant]
     Active Substance: ATROPINE SULFATE\DIPHENOXYLATE HYDROCHLORIDE
     Indication: Diarrhoea
     Dates: start: 20181012, end: 20190323
  33. CITRUCEL [Concomitant]
     Active Substance: METHYLCELLULOSE (4000 MPA.S)
     Indication: Prophylaxis
     Dates: start: 20190508
  34. LOSARTAN [Concomitant]
     Active Substance: LOSARTAN
     Indication: Hypertension
     Dates: start: 20180725, end: 20190807
  35. PAROXETINE [Concomitant]
     Active Substance: PAROXETINE
     Indication: Depression
     Dates: start: 20180529
  36. LORAZEPAM [Concomitant]
     Active Substance: LORAZEPAM
     Indication: Insomnia
     Dates: start: 20190307
  37. PAREGORIC [Concomitant]
     Active Substance: MORPHINE
     Indication: Diarrhoea
     Dates: start: 20180730, end: 20200318
  38. PROCTOFOAM (UNITED STATES) [Concomitant]
     Indication: Proctalgia
     Dates: start: 20180815, end: 20201223
  39. MAGNESIUM SULFATE [Concomitant]
     Active Substance: MAGNESIUM SULFATE
     Indication: Blood magnesium decreased
     Dates: start: 20181226, end: 20181226

REACTIONS (1)
  - Pericardial effusion [Recovered/Resolved]

NARRATIVE: CASE EVENT DATE: 20181127
